FAERS Safety Report 13638390 (Version 1)
Quarter: 2017Q2

REPORT INFORMATION
  Report Type: Spontaneous
  Country: FR (occurrence: FR)
  Receive Date: 20170609
  Receipt Date: 20170609
  Transmission Date: 20170830
  Serious: Yes (Other)
  Sender: FDA-Public Use
  Company Number: FR-BAYER-2017-105830

PATIENT
  Age: 44 Year
  Sex: Female

DRUGS (1)
  1. MIRENA [Suspect]
     Active Substance: LEVONORGESTREL
     Dosage: 20 MCG/24HR, CONT
     Route: 015
     Dates: start: 2008, end: 201704

REACTIONS (11)
  - Abdominal pain lower [None]
  - Balance disorder [None]
  - Dizziness [None]
  - Headache [None]
  - Hair growth abnormal [None]
  - Hyperthyroidism [None]
  - Depression [None]
  - Weight increased [None]
  - Breast pain [None]
  - Loss of libido [None]
  - Alopecia [None]
